FAERS Safety Report 5174243-6 (Version None)
Quarter: 2006Q4

REPORT INFORMATION
  Report Type: 
  Country: None (occurrence: None)
  Receive Date: 20061214
  Receipt Date: 20061206
  Transmission Date: 20070319
  Serious: Yes (Hospitalization)
  Sender: FDA-Public Use
  Company Number: JP-JNJFOC-20061201794

PATIENT
  Age: 38 Year

DRUGS (4)
  1. ORAP [Suspect]
     Route: 048
  2. ORAP [Suspect]
     Indication: DRUG USE FOR UNKNOWN INDICATION
     Route: 048
  3. HALOPERIDOL [Suspect]
     Route: 048
  4. HALOPERIDOL [Suspect]
     Indication: DRUG USE FOR UNKNOWN INDICATION
     Route: 048

REACTIONS (6)
  - BLOOD CREATINE PHOSPHOKINASE INCREASED [None]
  - BLOOD PRESSURE INCREASED [None]
  - CONVULSION [None]
  - HEART RATE INCREASED [None]
  - OCULOGYRATION [None]
  - WHITE BLOOD CELL COUNT INCREASED [None]
